FAERS Safety Report 4935830-0 (Version None)
Quarter: 2006Q1

REPORT INFORMATION
  Report Type: 
  Country: None (occurrence: None)
  Receive Date: 20060302
  Receipt Date: 20060214
  Transmission Date: 20060701
  Serious: Yes (Hospitalization)
  Sender: FDA-Public Use
  Company Number: 222589

PATIENT
  Age: 38 Year
  Sex: Female
  Weight: 106.1 kg

DRUGS (8)
  1. TRASTUZUMAB (TRASTUZUMAB)PWDR + SOLVENT, INFUSION SOLN, 440 MG [Suspect]
     Indication: BREAST CANCER
     Dosage: 196 MG, 1/WEEK, INTRAVENOUS
     Route: 042
     Dates: start: 20050819, end: 20060127
  2. CAPECITABINE (CAPECITABINE) [Suspect]
     Indication: BREAST CANCER
     Dosage: 1800 MG, X2, ORAL
     Route: 048
     Dates: start: 20051111, end: 20060126
  3. DOCETAXEL (DOCETAXEL) [Suspect]
     Indication: BREAST CANCER
     Dosage: 70.7 MG, 1/WEEK, INTRAVENOUS
     Route: 042
     Dates: start: 20051111, end: 20060120
  4. FLUOROURACIL [Suspect]
     Indication: BREAST CANCER
     Dosage: 1010 MG, Q3W, INTRAVENOUS
     Route: 042
     Dates: start: 20050819, end: 20051031
  5. CYCLOPHOSPHAMIDE [Suspect]
     Indication: BREAST CANCER
     Dosage: 1010 MG, Q3W, INTRAVENOUS
     Route: 042
     Dates: start: 20050819, end: 20051221
  6. EPIRUBICIN [Suspect]
     Indication: BREAST CANCER
     Dosage: 151.5 MG, Q3W, INTRAVENOUS
     Route: 042
     Dates: start: 20050819, end: 20051031
  7. IMODIUM [Concomitant]
  8. MAALOX (ALUMINUM HYDROXIDE, MAGNESIUM HYDROXIDE) [Concomitant]

REACTIONS (2)
  - CHEST PAIN [None]
  - DYSPNOEA [None]
